FAERS Safety Report 15030259 (Version 1)
Quarter: 2018Q2

REPORT INFORMATION
  Report Type: Spontaneous
  Country: FR (occurrence: FR)
  Receive Date: 20180619
  Receipt Date: 20180619
  Transmission Date: 20180711
  Serious: Yes (Death, Other)
  Sender: FDA-Public Use
  Company Number: FR-PFIZER INC-2018244615

PATIENT
  Age: 54 Year
  Sex: Female
  Weight: 53 kg

DRUGS (4)
  1. PREDNISOLONE. [Concomitant]
     Active Substance: PREDNISOLONE
     Dosage: 50 MG, 1X/DAY
     Dates: start: 20150330
  2. OXOMEMAZINE [Concomitant]
     Active Substance: OXOMEMAZINE
     Dosage: 1 SOUP SPOON, 3X/DAY
     Dates: start: 20180330
  3. PRODILANTIN [Suspect]
     Active Substance: FOSPHENYTOIN SODIUM
     Indication: EPILEPSY
     Dosage: 15 MG/KG, UNK
     Route: 042
     Dates: start: 20180409, end: 20180409
  4. RUPATADINE [Concomitant]
     Active Substance: RUPATADINE
     Dosage: 10 MG, 1X/DAY

REACTIONS (1)
  - Cardiac arrest [Fatal]

NARRATIVE: CASE EVENT DATE: 20180409
